FAERS Safety Report 5165634-8 (Version None)
Quarter: 2006Q4

REPORT INFORMATION
  Report Type: 
  Country: None (occurrence: None)
  Receive Date: 20061206
  Receipt Date: 20061127
  Transmission Date: 20070319
  Serious: Yes (Other)
  Sender: FDA-Public Use
  Company Number: US-NOVOPROD-258820

PATIENT
  Age: 60 Year
  Sex: Female

DRUGS (1)
  1. ACTIVELLA [Suspect]
     Indication: ILL-DEFINED DISORDER
     Dosage: UNKNOWN
     Route: 048

REACTIONS (1)
  - ENDOMETRIAL CANCER [None]
